FAERS Safety Report 5192220-6 (Version None)
Quarter: 2006Q4

REPORT INFORMATION
  Report Type: 
  Country: None (occurrence: None)
  Receive Date: 20061220
  Receipt Date: 20061208
  Transmission Date: 20070319
  Serious: Yes (Other)
  Sender: FDA-Public Use
  Company Number: 2006144001

PATIENT
  Age: 77 Year
  Sex: Female
  Weight: 73 kg

DRUGS (4)
  1. AROMASIN [Suspect]
     Indication: BREAST CANCER
     Dosage: 25 MG (25 MG, 1 IN 1 D), ORAL
     Route: 048
     Dates: start: 20050216
  2. CLOPIDOGREL [Concomitant]
  3. SIMVASTATIN [Concomitant]
  4. PERINDOPRIL ERBUMINE [Concomitant]

REACTIONS (5)
  - BLOOD PRESSURE SYSTOLIC INCREASED [None]
  - CAROTID ARTERY ATHEROMA [None]
  - NUCLEAR MAGNETIC RESONANCE IMAGING BRAIN ABNORMAL [None]
  - THERAPEUTIC RESPONSE DECREASED [None]
  - TRANSIENT ISCHAEMIC ATTACK [None]
